FAERS Safety Report 24000710 (Version 2)
Quarter: 2024Q3

REPORT INFORMATION
  Report Type: Spontaneous
  Country: US (occurrence: US)
  Receive Date: 20240621
  Receipt Date: 20240828
  Transmission Date: 20241017
  Serious: No
  Sender: PFIZER
  Company Number: US-PFIZER INC-202400099467

PATIENT
  Age: 64 Year
  Sex: Female

DRUGS (3)
  1. VELSIPITY [Suspect]
     Active Substance: ETRASIMOD ARGININE
     Dosage: 2 MG, DAILY
  2. ROSUVASTATIN [Concomitant]
     Active Substance: ROSUVASTATIN\ROSUVASTATIN CALCIUM
     Indication: Blood cholesterol increased
     Dosage: UNK
  3. BIOTIN [Concomitant]
     Active Substance: BIOTIN
     Indication: Supplementation therapy

REACTIONS (1)
  - Anal incontinence [Unknown]
